FAERS Safety Report 8988606 (Version 7)
Quarter: 2017Q3

REPORT INFORMATION
  Report Type: Spontaneous
  Country: JP (occurrence: JP)
  Receive Date: 20121228
  Receipt Date: 20170913
  Transmission Date: 20171128
  Serious: Yes (Other)
  Sender: FDA-Public Use
  Company Number: JP-PFIZER INC-2012323928

PATIENT
  Age: 35 Year
  Sex: Male
  Weight: 51 kg

DRUGS (9)
  1. CERCINE [Concomitant]
     Active Substance: DIAZEPAM
     Dosage: UNK
  2. LENDORMIN [Concomitant]
     Active Substance: BROTIZOLAM
     Dosage: UNK
  3. EPIVIR [Concomitant]
     Active Substance: LAMIVUDINE
     Dosage: UNK
  4. ISENTRESS [Concomitant]
     Active Substance: RALTEGRAVIR POTASSIUM
     Dosage: UNK
  5. CATLEP [Concomitant]
     Active Substance: INDOMETHACIN
     Indication: FACTOR IX DEFICIENCY
     Dosage: UNK
  6. FEIBA [Suspect]
     Active Substance: ANTI-INHIBITOR COAGULANT COMPLEX
     Indication: FACTOR IX DEFICIENCY
     Dosage: 2000-3000 UNITS
     Route: 042
     Dates: start: 201110
  7. BENEFIX [Suspect]
     Active Substance: COAGULATION FACTOR IX RECOMBINANT HUMAN\ISOPROPYL ALCOHOL
     Dosage: UNK
     Route: 042
     Dates: end: 201210
  8. REFLEX [Concomitant]
     Active Substance: MIRTAZAPINE
     Dosage: UNK
  9. RETROVIR [Concomitant]
     Active Substance: ZIDOVUDINE
     Dosage: UNK

REACTIONS (1)
  - Factor IX inhibition [Recovered/Resolved]

NARRATIVE: CASE EVENT DATE: 20121030
